FAERS Safety Report 25664715 (Version 1)
Quarter: 2025Q3

REPORT INFORMATION
  Report Type: Spontaneous
  Country: EU (occurrence: EU)
  Receive Date: 20250811
  Receipt Date: 20250811
  Transmission Date: 20251021
  Serious: Yes (Hospitalization)
  Sender: MYLAN
  Company Number: EU-MYLANLABS-2025M1066729

PATIENT
  Age: 91 Year
  Sex: Male

DRUGS (16)
  1. ZOLPIDEM [Suspect]
     Active Substance: ZOLPIDEM TARTRATE
     Indication: Product used for unknown indication
  2. ZOLPIDEM [Suspect]
     Active Substance: ZOLPIDEM TARTRATE
     Route: 065
  3. ZOLPIDEM [Suspect]
     Active Substance: ZOLPIDEM TARTRATE
     Route: 065
  4. ZOLPIDEM [Suspect]
     Active Substance: ZOLPIDEM TARTRATE
  5. RIVASTIGMINE [Suspect]
     Active Substance: RIVASTIGMINE
     Indication: Product used for unknown indication
  6. RIVASTIGMINE [Suspect]
     Active Substance: RIVASTIGMINE
     Route: 065
  7. RIVASTIGMINE [Suspect]
     Active Substance: RIVASTIGMINE
     Route: 065
  8. RIVASTIGMINE [Suspect]
     Active Substance: RIVASTIGMINE
  9. HALOPERIDOL [Suspect]
     Active Substance: HALOPERIDOL
     Indication: Product used for unknown indication
  10. HALOPERIDOL [Suspect]
     Active Substance: HALOPERIDOL
     Route: 065
  11. HALOPERIDOL [Suspect]
     Active Substance: HALOPERIDOL
     Route: 065
  12. HALOPERIDOL [Suspect]
     Active Substance: HALOPERIDOL
  13. APIXABAN [Concomitant]
     Active Substance: APIXABAN
  14. APIXABAN [Concomitant]
     Active Substance: APIXABAN
     Route: 065
  15. APIXABAN [Concomitant]
     Active Substance: APIXABAN
     Route: 065
  16. APIXABAN [Concomitant]
     Active Substance: APIXABAN

REACTIONS (2)
  - Behaviour disorder [Unknown]
  - Drug ineffective [Unknown]
